FAERS Safety Report 9012024 (Version 2)
Quarter: 2013Q1

REPORT INFORMATION
  Report Type: Spontaneous
  Country: JP (occurrence: None)
  Receive Date: 20121228
  Receipt Date: 20130211
  Transmission Date: 20140127
  Serious: Yes (Other)
  Sender: FDA-Public Use
  Company Number: DSJ-2012-24914

PATIENT
  Age: 51 Year
  Sex: Male
  Weight: 72.5 kg

DRUGS (2)
  1. OLMETEC (OLMESARTAN MEDOXOMIL) (TABLET) (OLMESARTAN MEDOXOMIL) [Suspect]
     Indication: HYPERTENSION
     Dosage: 1 IN 1 D
     Route: 048
     Dates: start: 20121214, end: 20121221
  2. NORVASC (AMLODIPINE BESILATE) [Concomitant]

REACTIONS (4)
  - Shock [None]
  - Dizziness [None]
  - Loss of consciousness [None]
  - Blood pressure decreased [None]
